FAERS Safety Report 8192137-9 (Version None)
Quarter: 2012Q1

REPORT INFORMATION
  Report Type: 
  Country: None (occurrence: None)
  Receive Date: 20120307
  Receipt Date: 20120224
  Transmission Date: 20120608
  Serious: Yes (Death, Hospitalization, Other)
  Sender: FDA-Public Use
  Company Number: HU-PFIZER INC-2011205603

PATIENT
  Age: 79 Year
  Sex: Female

DRUGS (3)
  1. POTASSIUM [Suspect]
  2. AMARYL [Suspect]
     Indication: TYPE 2 DIABETES MELLITUS
     Dosage: 1 MG, UNK
     Dates: start: 20101116
  3. RAMIPRIL [Suspect]
     Route: 048

REACTIONS (2)
  - CARDIAC DEATH [None]
  - BRADYARRHYTHMIA [None]
